FAERS Safety Report 5867660-X (Version None)
Quarter: 2008Q3

REPORT INFORMATION
  Report Type: 
  Country: None (occurrence: None)
  Receive Date: 20080902
  Receipt Date: 20071221
  Transmission Date: 20090109
  Serious: No
  Sender: FDA-Public Use
  Company Number: US-ABBOTT-08P-163-0431773-00

PATIENT
  Sex: Female
  Weight: 68.554 kg

DRUGS (2)
  1. DEPAKOTE ER [Suspect]
     Indication: CONVULSION
     Route: 048
     Dates: start: 20061001
  2. DEPAKOTE ER [Suspect]
     Route: 048
     Dates: start: 20000101, end: 20060101

REACTIONS (2)
  - CONVULSION [None]
  - MEDICATION RESIDUE [None]
